FAERS Safety Report 4280558-6 (Version None)
Quarter: 2004Q1

REPORT INFORMATION
  Report Type: 
  Country: None (occurrence: None)
  Receive Date: 20040127
  Receipt Date: 20040115
  Transmission Date: 20041129
  Serious: Yes (Other)
  Sender: FDA-Public Use
  Company Number: 2004003868

PATIENT
  Sex: Female

DRUGS (1)
  1. PIROXICAM [Suspect]
     Indication: ILL-DEFINED DISORDER
     Dosage: ORAL
     Route: 048

REACTIONS (4)
  - DERMATITIS BULLOUS [None]
  - HALLUCINATION, VISUAL [None]
  - HEAD DEFORMITY [None]
  - RASH [None]
